FAERS Safety Report 14012287 (Version 2)
Quarter: 2017Q4

REPORT INFORMATION
  Report Type: Spontaneous
  Country: US (occurrence: US)
  Receive Date: 20170926
  Receipt Date: 20171103
  Transmission Date: 20180321
  Serious: Yes (Hospitalization, Other)
  Sender: FDA-Public Use
  Company Number: US-PFIZER INC-2017413332

PATIENT
  Age: 56 Year
  Sex: Male

DRUGS (4)
  1. NORTHERA [Suspect]
     Active Substance: DROXIDOPA
     Dosage: 300 MG, UNK
  2. NORCO [Suspect]
     Active Substance: ACETAMINOPHEN\HYDROCODONE BITARTRATE
     Dosage: UNK
  3. NORTHERA [Suspect]
     Active Substance: DROXIDOPA
     Indication: NERVOUS SYSTEM DISORDER
     Dosage: 100 MG, UNK
  4. NEURONTIN [Suspect]
     Active Substance: GABAPENTIN
     Dosage: UNK

REACTIONS (10)
  - Diabetes mellitus inadequate control [Unknown]
  - Condition aggravated [Unknown]
  - Hemiparesis [Unknown]
  - Tremor [Unknown]
  - Pain [Unknown]
  - Blood creatinine increased [Unknown]
  - Swelling [Unknown]
  - Weight increased [Unknown]
  - Oedema [Unknown]
  - Constipation [Unknown]

NARRATIVE: CASE EVENT DATE: 201706
